FAERS Safety Report 9508308 (Version 1)
Quarter: 2013Q3

REPORT INFORMATION
  Report Type: Spontaneous
  Country: US (occurrence: US)
  Receive Date: 20130909
  Receipt Date: 20130909
  Transmission Date: 20140515
  Serious: No
  Sender: FDA-Public Use
  Company Number: US-PFIZER INC-2013257360

PATIENT
  Age: 58 Year
  Sex: Male
  Weight: 86.17 kg

DRUGS (5)
  1. ADVIL [Suspect]
     Indication: PAIN IN EXTREMITY
     Dosage: UNK
  2. ACETYLSALICYLIC ACID [Suspect]
     Indication: PAIN IN EXTREMITY
     Dosage: UNK
  3. GABAPENTIN [Suspect]
     Indication: PAIN IN EXTREMITY
     Dosage: 100 MG, 3X/DAY
     Dates: start: 2013
  4. GABAPENTIN [Suspect]
     Indication: NERVE INJURY
  5. LISINOPRIL [Concomitant]
     Indication: HYPERTENSION
     Dosage: UNK

REACTIONS (4)
  - Ulcer [Unknown]
  - Drug ineffective [Unknown]
  - Hypoaesthesia [Unknown]
  - Paraesthesia [Unknown]
